FAERS Safety Report 7464380-5 (Version None)
Quarter: 2011Q2

REPORT INFORMATION
  Report Type: 
  Country: None (occurrence: None)
  Receive Date: 20110509
  Receipt Date: 20110112
  Transmission Date: 20111010
  Serious: Yes (Death, Hospitalization)
  Sender: FDA-Public Use
  Company Number: CH-BAYER-201038252GPV

PATIENT
  Age: 53 Year
  Sex: Male
  Weight: 84 kg

DRUGS (10)
  1. PROPRANOLOL [Concomitant]
     Dosage: 80 MG (DAILY DOSE), , ORAL
     Route: 048
  2. MORPHINE [Concomitant]
     Dosage: 10 MG (DAILY DOSE), , ORAL
     Route: 048
  3. NEXAVAR [Suspect]
     Indication: HEPATIC NEOPLASM MALIGNANT
     Dosage: 800 MG (DAILY DOSE), , ORAL
     Route: 048
     Dates: start: 20100628, end: 20100821
  4. CITALOPRAM HYDROBROMIDE [Suspect]
     Dosage: 20 MG, QD
     Route: 048
     Dates: end: 20100906
  5. CIPROXIN [Concomitant]
     Dosage: 500 MG, QD
     Route: 048
     Dates: end: 20100906
  6. PANTOPRAZOLE [Concomitant]
     Dosage: 40 MG (DAILY DOSE), , ORAL
     Route: 048
     Dates: start: 20100525
  7. MOVIPREP [Concomitant]
     Dosage: 1 DF, BID
     Route: 041
     Dates: end: 20100906
  8. ALPRAZOLAM [Concomitant]
     Dosage: 0.5 MG (DAILY DOSE), , ORAL
     Route: 048
     Dates: start: 20100525, end: 20100827
  9. DUPHALAC [Concomitant]
     Dosage: 20 ML, BID
     Route: 048
     Dates: end: 20100906
  10. KAVITAMIN [Concomitant]
     Dosage: 10 MG, QD
     Route: 048
     Dates: end: 20100906

REACTIONS (8)
  - HEPATIC FAILURE [None]
  - HYPONATRAEMIA [None]
  - FATIGUE [None]
  - RENAL FAILURE ACUTE [None]
  - HEPATIC NEOPLASM MALIGNANT [None]
  - INAPPROPRIATE ANTIDIURETIC HORMONE SECRETION [None]
  - CONFUSIONAL STATE [None]
  - DISORIENTATION [None]
